FAERS Safety Report 5013643-1 (Version None)
Quarter: 2006Q2

REPORT INFORMATION
  Report Type: 
  Country: None (occurrence: None)
  Receive Date: 20060530
  Receipt Date: 20060520
  Transmission Date: 20061013
  Serious: Yes (Disabling)
  Sender: FDA-Public Use
  Company Number: GB-GLAXOSMITHKLINE-B0424619A

PATIENT
  Age: 61 Year
  Sex: Female
  Weight: 27 kg

DRUGS (5)
  1. PAROXETINE [Suspect]
     Indication: DEPRESSION
     Route: 048
     Dates: start: 20030101, end: 20060424
  2. BENDROFLUAZIDE [Concomitant]
     Dosage: 2.5MG PER DAY
     Route: 048
  3. FELODIPINE [Concomitant]
     Dosage: 5MG PER DAY
     Route: 048
  4. OMEPRAZOLE [Concomitant]
     Dosage: 10MG PER DAY
     Route: 048
  5. ACETAMINOPHEN W/ CODEINE [Concomitant]
     Route: 065

REACTIONS (7)
  - ANXIETY [None]
  - DRUG WITHDRAWAL SYNDROME [None]
  - ELECTRIC SHOCK [None]
  - HYPERHIDROSIS [None]
  - NAUSEA [None]
  - TREMOR [None]
  - VERTIGO [None]
